FAERS Safety Report 12535537 (Version 1)
Quarter: 2016Q3

REPORT INFORMATION
  Report Type: Spontaneous
  Country: RU (occurrence: RU)
  Receive Date: 20160707
  Receipt Date: 20160707
  Transmission Date: 20161109
  Serious: Yes (Hospitalization)
  Sender: FDA-Public Use
  Company Number: RU-ASTRAZENECA-2016SE72348

PATIENT
  Age: 65 Year
  Sex: Male

DRUGS (6)
  1. ERYTHROMYCIN. [Concomitant]
     Active Substance: ERYTHROMYCIN
     Indication: PNEUMONIA
     Route: 041
  2. SEROQUEL [Suspect]
     Active Substance: QUETIAPINE FUMARATE
     Dosage: 50 MILLIGRAM IN THE MORNING AND 150 MILLIGRAMS IN THE EVENING
     Route: 048
  3. SEROQUEL [Suspect]
     Active Substance: QUETIAPINE FUMARATE
     Dosage: 25 MILLIGRAMS AND 50 MILLIGRAMS TWICE A DAY
     Route: 048
  4. CLARITHROMYCIN. [Concomitant]
     Active Substance: CLARITHROMYCIN
     Indication: PNEUMONIA
     Route: 041
  5. LEVOFLOXACIN. [Concomitant]
     Active Substance: LEVOFLOXACIN
  6. SUPRAX [Concomitant]
     Active Substance: CEFIXIME

REACTIONS (4)
  - Pneumonia [Unknown]
  - Hepatic enzyme increased [Unknown]
  - Intentional product misuse [Unknown]
  - Rash [Unknown]
